FAERS Safety Report 9348152 (Version 1)
Quarter: 2013Q2

REPORT INFORMATION
  Report Type: Spontaneous
  Country: US (occurrence: None)
  Receive Date: 20130612
  Receipt Date: 20130612
  Transmission Date: 20140414
  Serious: Yes (Life-Threatening, Hospitalization)
  Sender: FDA-Public Use
  Company Number: None

PATIENT
  Age: 19 Year
  Sex: Female
  Weight: 126.8 kg

DRUGS (1)
  1. NEXPLANON [Suspect]
     Indication: CONTRACEPTION
     Dosage: 1 68MG IMPLAT, ONE TIME ADMINSTRA, SUBDERMAL IMPLANT
     Dates: start: 20121108, end: 20130518

REACTIONS (3)
  - Pain in extremity [None]
  - Swelling [None]
  - Pulmonary embolism [None]
